FAERS Safety Report 4925976-5 (Version None)
Quarter: 2006Q1

REPORT INFORMATION
  Report Type: 
  Country: None (occurrence: None)
  Receive Date: 20060228
  Receipt Date: 20051121
  Transmission Date: 20060701
  Serious: Yes (Hospitalization)
  Sender: FDA-Public Use
  Company Number: JP-BRISTOL-MYERS SQUIBB COMPANY-13190186

PATIENT
  Age: 69 Year
  Sex: Female

DRUGS (2)
  1. PARAPLATIN [Suspect]
     Indication: UTERINE CANCER
     Route: 042
     Dates: start: 20051102, end: 20051102
  2. TAXOL [Suspect]
     Indication: UTERINE CANCER
     Route: 042
     Dates: start: 20051102, end: 20051102

REACTIONS (1)
  - COLITIS ISCHAEMIC [None]
